FAERS Safety Report 7122984-3 (Version None)
Quarter: 2010Q4

REPORT INFORMATION
  Report Type: 
  Country: None (occurrence: None)
  Receive Date: 20101124
  Receipt Date: 20101118
  Transmission Date: 20110411
  Serious: Yes (Hospitalization)
  Sender: FDA-Public Use
  Company Number: GB-PFIZER INC-2010152913

PATIENT
  Age: 92 Year
  Sex: Female

DRUGS (8)
  1. CELECOXIB [Suspect]
     Indication: OSTEOARTHRITIS
     Dosage: 100 MG, 1X/DAY
     Route: 048
     Dates: start: 20101007, end: 20101018
  2. AMLODIPINE [Concomitant]
     Dosage: UNK
  3. CLEXANE [Concomitant]
     Dosage: UNK
  4. CO-CODAMOL [Concomitant]
     Dosage: UNK
  5. FENTANYL [Concomitant]
     Dosage: UNK
  6. LAXIDO [Concomitant]
     Dosage: UNK
  7. LEVOBUNOLOL HYDROCHLORIDE [Concomitant]
     Dosage: UNK
  8. PARACETAMOL [Concomitant]
     Dosage: UNK

REACTIONS (4)
  - HYPERKALAEMIA [None]
  - MALAISE [None]
  - PRURITUS [None]
  - RENAL FAILURE ACUTE [None]
